FAERS Safety Report 5186083-2 (Version None)
Quarter: 2006Q4

REPORT INFORMATION
  Report Type: 
  Country: None (occurrence: None)
  Receive Date: 20061220
  Receipt Date: 20061023
  Transmission Date: 20070319
  Serious: No
  Sender: FDA-Public Use
  Company Number: US-GLAXOSMITHKLINE-A0624474A

PATIENT
  Age: 52 Year
  Sex: Male

DRUGS (2)
  1. NICODERM CQ [Suspect]
     Dates: start: 20061020
  2. BUPROPION HCL [Concomitant]

REACTIONS (4)
  - ANXIETY [None]
  - DIZZINESS [None]
  - INSOMNIA [None]
  - INTENTIONAL DRUG MISUSE [None]
